FAERS Safety Report 9692994 (Version 3)
Quarter: 2014Q1

REPORT INFORMATION
  Report Type: Spontaneous
  Country: JP (occurrence: JP)
  Receive Date: 20131118
  Receipt Date: 20140211
  Transmission Date: 20141002
  Serious: Yes (Hospitalization, Other)
  Sender: FDA-Public Use
  Company Number: JP-ASTELLAS-2013JP010265

PATIENT
  Age: 81 Year
  Sex: Male
  Weight: 41.1 kg

DRUGS (11)
  1. VESICARE [Suspect]
     Dosage: 5 MG, UID/QD
     Route: 048
     Dates: end: 20121018
  2. CIBENOL [Concomitant]
     Indication: ATRIAL FIBRILLATION
     Dosage: 100 MG, TID
     Route: 065
     Dates: end: 20121015
  3. NORVASC [Concomitant]
     Dosage: 10 MG, UID/QD
     Route: 048
  4. CRESTOR [Concomitant]
     Dosage: 2.5 MG, UID/QD
     Route: 048
  5. PLETAAL [Concomitant]
     Dosage: 50 MG, BID
     Route: 048
  6. MAGLAX [Concomitant]
     Dosage: 500 MG, BID
     Route: 048
  7. LAXOBERON [Concomitant]
     Dosage: 5 MG, UID/QD
     Route: 048
  8. BICALUTAMIDE [Concomitant]
     Dosage: 80 MG, UID/QD
     Route: 048
  9. LANSOPRAZOLE [Concomitant]
     Dosage: 15 MG, UID/QD
     Route: 048
  10. CELECOX [Concomitant]
     Dosage: 100 MG, BID
     Route: 048
  11. GASMOTIN [Concomitant]
     Dosage: 5 MG, TID
     Route: 048

REACTIONS (2)
  - Long QT syndrome [Recovered/Resolved]
  - Pneumonia [Recovered/Resolved]
